FAERS Safety Report 10735673 (Version 2)
Quarter: 2015Q1

REPORT INFORMATION
  Report Type: Report from Study
  Country: US (occurrence: None)
  Receive Date: 20150120
  Receipt Date: 20150211
  Transmission Date: 20150721
  Serious: Yes (Hospitalization)
  Sender: FDA-Public Use
  Company Number: US-001625

PATIENT
  Age: 59 Year
  Sex: Female

DRUGS (4)
  1. GATTEX [Suspect]
     Active Substance: TEDUGLUTIDE\WATER
     Indication: SHORT-BOWEL SYNDROME
     Route: 058
     Dates: start: 20130521
  2. SOLUTIONS FOR PARENTERAL NUTRITION [Concomitant]
     Active Substance: AMINO ACIDS\DEXTROSE\ELECTROLYTES NOS
  3. OTHER ANALGESICS AND ANTIPYRETICS [Concomitant]
  4. CODEINE SULFATE. [Concomitant]
     Active Substance: CODEINE SULFATE

REACTIONS (5)
  - Faecaloma [None]
  - Drug dose omission [None]
  - Abdominal pain [None]
  - Diarrhoea [None]
  - Frequent bowel movements [None]

NARRATIVE: CASE EVENT DATE: 201412
